FAERS Safety Report 24575169 (Version 1)
Quarter: 2024Q4

REPORT INFORMATION
  Report Type: Report from Study
  Country: US (occurrence: US)
  Receive Date: 20241104
  Receipt Date: 20241104
  Transmission Date: 20250115
  Serious: No
  Sender: BIOVITRUM
  Company Number: US-BIOVITRUM-2024-US-009211

PATIENT
  Age: 40 Year
  Sex: Male

DRUGS (2)
  1. KINERET [Suspect]
     Active Substance: ANAKINRA
     Indication: Monoclonal gammopathy
     Dosage: DAILY
     Route: 058
     Dates: start: 20240626
  2. KINERET [Suspect]
     Active Substance: ANAKINRA
     Dosage: DAILY
     Route: 058

REACTIONS (8)
  - Off label use [Not Recovered/Not Resolved]
  - Fear of injection [Unknown]
  - Injection site pain [Unknown]
  - Urticaria [Unknown]
  - Monoclonal gammopathy [Unknown]
  - Condition aggravated [Unknown]
  - Memory impairment [Unknown]
  - Product use issue [Unknown]

NARRATIVE: CASE EVENT DATE: 20240626
